FAERS Safety Report 4709438-6 (Version None)
Quarter: 2005Q3

REPORT INFORMATION
  Report Type: 
  Country: None (occurrence: None)
  Receive Date: 20050708
  Receipt Date: 20040123
  Transmission Date: 20060218
  Serious: Yes (Other)
  Sender: FDA-Public Use
  Company Number: US-GLAXOSMITHKLINE-A0495036A

PATIENT
  Age: 47 Year
  Sex: Female

DRUGS (7)
  1. LAMICTAL [Suspect]
     Indication: BIPOLAR DISORDER
     Route: 048
     Dates: start: 20031022
  2. DEPAKOTE [Suspect]
     Dosage: 1000MG PER DAY
  3. DEPAKOTE ER [Suspect]
  4. SYNTHROID [Suspect]
     Route: 065
  5. IBUPROFEN [Concomitant]
  6. BENADRYL [Concomitant]
  7. MULTI-VITAMINS [Concomitant]

REACTIONS (16)
  - AGGRESSION [None]
  - AMNESIA [None]
  - CONFUSIONAL STATE [None]
  - CONSTIPATION [None]
  - DRUG INEFFECTIVE [None]
  - DRUG INTERACTION [None]
  - ELEVATED MOOD [None]
  - HYPOAESTHESIA [None]
  - MANIA [None]
  - MENTAL DISORDER [None]
  - MENTAL IMPAIRMENT [None]
  - NAUSEA [None]
  - PHARYNGOLARYNGEAL PAIN [None]
  - SENSORY LOSS [None]
  - WEIGHT DECREASED [None]
  - WEIGHT INCREASED [None]
